FAERS Safety Report 7770428-0 (Version None)
Quarter: 2011Q3

REPORT INFORMATION
  Report Type: 
  Country: None (occurrence: None)
  Receive Date: 20110922
  Receipt Date: 20110207
  Transmission Date: 20111222
  Serious: No
  Sender: FDA-Public Use
  Company Number: US-ASTRAZENECA-2011SE06793

PATIENT
  Age: 52 Year
  Sex: Male
  Weight: 107.5 kg

DRUGS (5)
  1. AMITRIPTYLINE HCL [Concomitant]
  2. FLUID PILL [Concomitant]
  3. POTASSIUM [Concomitant]
  4. SEROQUEL [Suspect]
     Indication: SLEEP DISORDER
     Dosage: 100 TO 200 MGS AT NIGHT
     Route: 048
     Dates: start: 20100101, end: 20110130
  5. SEROQUEL [Suspect]
     Indication: PARKINSON'S DISEASE
     Dosage: 100 TO 200 MGS AT NIGHT
     Route: 048
     Dates: start: 20100101, end: 20110130

REACTIONS (5)
  - INSOMNIA [None]
  - DYSKINESIA [None]
  - DRUG DOSE OMISSION [None]
  - HEADACHE [None]
  - WRONG TECHNIQUE IN DRUG USAGE PROCESS [None]
